FAERS Safety Report 4980379-2 (Version None)
Quarter: 2006Q2

REPORT INFORMATION
  Report Type: 
  Country: None (occurrence: None)
  Receive Date: 20060421
  Receipt Date: 20060421
  Transmission Date: 20061013
  Serious: Yes (Hospitalization)
  Sender: FDA-Public Use
  Company Number: None

PATIENT
  Sex: Female

DRUGS (1)
  1. ULTRAM [Suspect]
     Indication: TENSION HEADACHE
     Dosage: PO
     Route: 048
     Dates: start: 20060301, end: 20060406

REACTIONS (5)
  - CONFUSIONAL STATE [None]
  - CONVULSION [None]
  - DRY MOUTH [None]
  - INSOMNIA [None]
  - POSTICTAL STATE [None]
